FAERS Safety Report 8570925-4 (Version None)
Quarter: 2012Q3

REPORT INFORMATION
  Report Type: 
  Country: None (occurrence: None)
  Receive Date: 20120806
  Receipt Date: 20120725
  Transmission Date: 20120928
  Serious: No
  Sender: FDA-Public Use
  Company Number: US-BIOGENIDEC-2012BI027788

PATIENT
  Sex: Female

DRUGS (1)
  1. TYSABRI [Suspect]
     Indication: MULTIPLE SCLEROSIS
     Route: 042
     Dates: start: 20120217, end: 20120620

REACTIONS (8)
  - ARTHRALGIA [None]
  - MUSCULAR WEAKNESS [None]
  - GAIT DISTURBANCE [None]
  - BONE PAIN [None]
  - LOSS OF CONTROL OF LEGS [None]
  - ARTHROPATHY [None]
  - MULTIPLE SCLEROSIS [None]
  - HYPERAESTHESIA [None]
